FAERS Safety Report 4661109-0 (Version None)
Quarter: 2005Q2

REPORT INFORMATION
  Report Type: 
  Country: None (occurrence: None)
  Receive Date: 20050511
  Receipt Date: 20050321
  Transmission Date: 20051028
  Serious: Yes (Death, Other)
  Sender: FDA-Public Use
  Company Number: 2005046115

PATIENT
  Age: 60 Year
  Sex: Female

DRUGS (14)
  1. BEXTRA [Suspect]
     Indication: PAIN
     Dosage: 40 MG (40 MG, 1 IN 1 D), ORAL
     Route: 048
     Dates: start: 20050124, end: 20050129
  2. CALCITROL (CALCIUM CARBONATE, ERGOCALCIFEROL RETINOL) [Concomitant]
  3. CALCIUM CARBONATE (CALCIUM CARBONATE) [Concomitant]
  4. DIGOXIN [Concomitant]
  5. ACARBOSE (ACARBOSE) [Concomitant]
  6. TRAMADOL HCL [Concomitant]
  7. ASPIRIN [Concomitant]
  8. VASERETIC [Concomitant]
  9. LACTULOSE [Concomitant]
  10. B-KOMPLEX ^LECIVA^ (CALCIUM PANTOTHENATE, NICOTINAMIDE, PYRIDOXINE HYD [Concomitant]
  11. ISOSORBIDE MONONITRATE [Concomitant]
  12. ISOSORBIDE DINITRATE [Concomitant]
  13. INSULIN GLARGINE (INSULIN GLARGINE) [Concomitant]
  14. GABAPENTIN [Concomitant]

REACTIONS (2)
  - ACUTE CORONARY SYNDROME [None]
  - CARDIAC ARREST [None]
